FAERS Safety Report 8904662 (Version 1)
Quarter: 2012Q4

REPORT INFORMATION
  Report Type: 
  Country: US (occurrence: US)
  Receive Date: 20121113
  Receipt Date: 20121113
  Transmission Date: 20130627
  Serious: No
  Sender: FDA-Public Use
  Company Number: US-GLAXOSMITHKLINE-A0949711A

PATIENT
  Age: 50 Year
  Sex: Male

DRUGS (5)
  1. CARVEDILOL [Suspect]
     Indication: PRODUCT USED FOR UNKNOWN INDICATION
     Dosage: 6.25MG Twice per day
     Route: 048
     Dates: start: 20111012
  2. LISINOPRIL [Concomitant]
  3. PREVACID [Concomitant]
  4. CIALIS [Concomitant]
  5. HCTZ [Concomitant]

REACTIONS (3)
  - Dizziness [Not Recovered/Not Resolved]
  - Blood pressure decreased [Unknown]
  - Heart rate decreased [Unknown]
